FAERS Safety Report 10483131 (Version 1)
Quarter: 2014Q3

REPORT INFORMATION
  Report Type: Report from Study
  Country: US (occurrence: US)
  Receive Date: 20140930
  Receipt Date: 20140930
  Transmission Date: 20150326
  Serious: Yes (Other)
  Sender: FDA-Public Use
  Company Number: US-ROCHE-1466440

PATIENT
  Sex: Male
  Weight: 51.9 kg

DRUGS (5)
  1. NUTROPIN AQ [Suspect]
     Active Substance: SOMATROPIN
     Indication: GROWTH HORMONE DEFICIENCY
     Dosage: 7DAYS/WEEK, INJECTION IN HIS STOMACH, ARMS AND THIGHS
     Route: 058
     Dates: start: 201111
  2. MIRALAX [Concomitant]
     Active Substance: POLYETHYLENE GLYCOL 3350
     Indication: CONSTIPATION
     Dosage: 1 CAPUL TID X 3 DAYS THEN THREE FOURTH CAP QD
     Route: 048
     Dates: start: 20140102
  3. MIRALAX [Concomitant]
     Active Substance: POLYETHYLENE GLYCOL 3350
     Dosage: 1 CAPUL TID X 3 DAYS THEN THREE FOURTH CAP QD
     Route: 048
  4. NORDITROPIN [Concomitant]
     Active Substance: SOMATROPIN
  5. ACETAMINOPHEN. [Concomitant]
     Active Substance: ACETAMINOPHEN

REACTIONS (10)
  - Tic [Recovered/Resolved]
  - Nightmare [Unknown]
  - Headache [Unknown]
  - Enuresis [Recovered/Resolved]
  - Injection site bruising [Unknown]
  - Eye movement disorder [Unknown]
  - Encopresis [Unknown]
  - Skin odour abnormal [Unknown]
  - Somnambulism [Unknown]
  - Abnormal behaviour [Unknown]

NARRATIVE: CASE EVENT DATE: 2012
